FAERS Safety Report 15229488 (Version 2)
Quarter: 2025Q2

REPORT INFORMATION
  Report Type: Spontaneous
  Country: RU (occurrence: RU)
  Receive Date: 20180802
  Receipt Date: 20250408
  Transmission Date: 20250717
  Serious: Yes (Death)
  Sender: ROCHE
  Company Number: RU-ROCHE-2162895

PATIENT
  Age: 62 Year
  Sex: Male

DRUGS (2)
  1. MABTHERA [Suspect]
     Active Substance: RITUXIMAB
     Indication: Chronic lymphocytic leukaemia
     Route: 042
  2. LEUKERAN [Concomitant]
     Active Substance: CHLORAMBUCIL

REACTIONS (5)
  - Bronchitis [Fatal]
  - Cerebrovascular accident [Fatal]
  - Viral infection [Fatal]
  - Atypical mycobacterial pneumonia [Fatal]
  - Disease progression [Unknown]
